FAERS Safety Report 24134830 (Version 1)
Quarter: 2024Q3

REPORT INFORMATION
  Report Type: Report from Study
  Country: US (occurrence: None)
  Receive Date: 20240725
  Receipt Date: 20240725
  Transmission Date: 20241017
  Serious: Yes (Hospitalization, Other)
  Sender: ASTRAZENECA
  Company Number: 2023A111903

PATIENT
  Age: 3778 Week
  Sex: Male

DRUGS (1)
  1. LYNPARZA [Suspect]
     Active Substance: OLAPARIB
     Indication: Prostate cancer
     Route: 048
     Dates: start: 20230501, end: 20230508

REACTIONS (6)
  - Dysphagia [Unknown]
  - Eye swelling [Unknown]
  - Eye disorder [Unknown]
  - Myocarditis [Unknown]
  - Incontinence [Unknown]
  - Malaise [Unknown]
